FAERS Safety Report 6039254-7 (Version None)
Quarter: 2009Q1

REPORT INFORMATION
  Report Type: 
  Country: None (occurrence: None)
  Receive Date: 20090115
  Receipt Date: 20090107
  Transmission Date: 20090719
  Serious: Yes (Other)
  Sender: FDA-Public Use
  Company Number: PHEH2009US00520

PATIENT
  Sex: Male

DRUGS (8)
  1. ZOMETA [Suspect]
     Indication: METASTASES TO BONE
     Dosage: 4 MG, QMO
     Route: 042
     Dates: start: 20070201, end: 20070501
  2. ZOMETA [Suspect]
     Indication: PROSTATE CANCER
  3. TAXOTERE [Concomitant]
  4. PREDNISONE TAB [Concomitant]
  5. EFFEXOR [Concomitant]
  6. ASPIRIN [Concomitant]
  7. VITAMIN B [Concomitant]
  8. VITAMIN D [Concomitant]

REACTIONS (1)
  - BONE DISORDER [None]
